FAERS Safety Report 21991066 (Version 1)
Quarter: 2023Q1

REPORT INFORMATION
  Report Type: Spontaneous
  Country: US (occurrence: US)
  Receive Date: 20230214
  Receipt Date: 20230214
  Transmission Date: 20230417
  Serious: No
  Sender: FDA-Public Use
  Company Number: US-SA-SAC20230213000677

PATIENT
  Age: 58 Year
  Sex: Male

DRUGS (9)
  1. DUPIXENT [Suspect]
     Active Substance: DUPILUMAB
     Indication: Hypersensitivity
     Dosage: 1 DF, QOW
     Route: 058
     Dates: start: 20221220
  2. DUPIXENT [Suspect]
     Active Substance: DUPILUMAB
     Indication: Dermatitis atopic
  3. ALLOPURINOL [Concomitant]
     Active Substance: ALLOPURINOL
  4. MELOXICAM [Concomitant]
     Active Substance: MELOXICAM
  5. GABAPENTIN [Concomitant]
     Active Substance: GABAPENTIN
  6. TRAMADOL [Concomitant]
     Active Substance: TRAMADOL
  7. PREDNISONE [Concomitant]
     Active Substance: PREDNISONE
  8. GLUCOSAMINE [Concomitant]
     Active Substance: GLUCOSAMINE
  9. LYSINE [Concomitant]
     Active Substance: LYSINE

REACTIONS (2)
  - Therapeutic product effect incomplete [Unknown]
  - Product use in unapproved indication [Unknown]

NARRATIVE: CASE EVENT DATE: 20221220
